FAERS Safety Report 9862016 (Version 1)
Quarter: 2014Q1

REPORT INFORMATION
  Report Type: Spontaneous
  Country: HR (occurrence: HR)
  Receive Date: 20140203
  Receipt Date: 20140203
  Transmission Date: 20141002
  Serious: Yes (Other)
  Sender: FDA-Public Use
  Company Number: HR-ELI_LILLY_AND_COMPANY-HR201401009539

PATIENT
  Sex: Male

DRUGS (5)
  1. ZYPADHERA [Suspect]
     Indication: SCHIZOPHRENIA
     Dosage: 300 MG, MONTHLY (1/M)
     Route: 030
     Dates: start: 20131015
  2. PRAZINE                            /00049902/ [Concomitant]
     Indication: SCHIZOPHRENIA
     Dosage: 25 MG, TID
     Route: 065
  3. ZOLOFT [Concomitant]
     Indication: DEPRESSION
     Dosage: 50 MG, BID
     Route: 065
  4. NORMABEL [Concomitant]
     Indication: ANXIETY
     Dosage: 5 MG, TID
     Route: 065
  5. EUTHYROX [Concomitant]
     Indication: PRODUCT USED FOR UNKNOWN INDICATION
     Dosage: UNK, BID
     Route: 065

REACTIONS (4)
  - Hyperhidrosis [Recovered/Resolved]
  - Tachycardia [Recovered/Resolved]
  - Asthenia [Recovered/Resolved]
  - Hypertension [Recovered/Resolved]
